FAERS Safety Report 7705511-9 (Version None)
Quarter: 2011Q3

REPORT INFORMATION
  Report Type: 
  Country: None (occurrence: None)
  Receive Date: 20110823
  Receipt Date: 20110823
  Transmission Date: 20111222
  Serious: No
  Sender: FDA-Public Use
  Company Number: None

PATIENT
  Age: 70 Year
  Sex: Female
  Weight: 76.2043 kg

DRUGS (2)
  1. ATELVIA [Suspect]
     Indication: BONE LOSS
     Dosage: 35 MG. 1 X WEEK
     Dates: start: 20110612
  2. ATELVIA [Suspect]
     Indication: BONE LOSS
     Dosage: 35 MG. 1 X WEEK
     Dates: start: 20110815

REACTIONS (4)
  - NECK PAIN [None]
  - PAIN IN EXTREMITY [None]
  - MUSCULOSKELETAL CHEST PAIN [None]
  - TEETHING [None]
